FAERS Safety Report 5632570-X (Version None)
Quarter: 2008Q1

REPORT INFORMATION
  Report Type: 
  Country: None (occurrence: None)
  Receive Date: 20080131
  Receipt Date: 20070518
  Transmission Date: 20080703
  Serious: No
  Sender: FDA-Public Use
  Company Number: 163-21880-07100567

PATIENT
  Age: 67 Year
  Sex: Male

DRUGS (7)
  1. REVLIMID [Suspect]
     Indication: MULTIPLE MYELOMA
     Dosage: 25 MG, 1 IN 1 D, ORAL
     Route: 048
     Dates: start: 20070410
  2. DEXAMETHASONE TAB [Concomitant]
  3. ASPIRIN [Concomitant]
  4. PROTONIX [Concomitant]
  5. MIRALAX [Concomitant]
  6. PROTONIX [Concomitant]
  7. FLUCONAZOLE [Concomitant]

REACTIONS (2)
  - CONTUSION [None]
  - SKIN DISORDER [None]
